FAERS Safety Report 4833443-2 (Version None)
Quarter: 2005Q4

REPORT INFORMATION
  Report Type: 
  Country: None (occurrence: None)
  Receive Date: 20051117
  Receipt Date: 20051103
  Transmission Date: 20060501
  Serious: Yes (Hospitalization, Disabling)
  Sender: FDA-Public Use
  Company Number: 2005-02298

PATIENT
  Age: 59 Year
  Sex: Female
  Weight: 97 kg

DRUGS (5)
  1. VELCADE [Suspect]
     Indication: MULTIPLE MYELOMA
     Dosage: 2.60 MG, ORAL
     Route: 048
     Dates: start: 20051010, end: 20051013
  2. CORTICOSTEROID NOS (CORTICOSTEROID NOS) [Concomitant]
  3. PARACETAMOL (PARACETAMOL) [Concomitant]
  4. CIPROFLOXACIN [Concomitant]
  5. CLINDAMYCIN (CLINDAMYCIN) [Concomitant]

REACTIONS (1)
  - OSTEOMYELITIS [None]
